FAERS Safety Report 5218845-7 (Version None)
Quarter: 2007Q1

REPORT INFORMATION
  Report Type: 
  Country: None (occurrence: None)
  Receive Date: 20070125
  Receipt Date: 20070118
  Transmission Date: 20070707
  Serious: Yes (Hospitalization)
  Sender: FDA-Public Use
  Company Number: FR-JNJFOC-20070105071

PATIENT
  Age: 93 Year
  Sex: Female

DRUGS (3)
  1. HALDOL [Suspect]
     Indication: HALLUCINATION
     Route: 048
     Dates: start: 20060719
  2. DOLIPRANE [Suspect]
     Indication: DRUG USE FOR UNKNOWN INDICATION
     Route: 048
     Dates: start: 20060426, end: 20061124
  3. VOLTAREN [Concomitant]
     Route: 065
     Dates: start: 20060929

REACTIONS (1)
  - PANCREATITIS ACUTE [None]
